FAERS Safety Report 18548561 (Version 1)
Quarter: 2020Q4

REPORT INFORMATION
  Report Type: Spontaneous
  Country: None (occurrence: US)
  Receive Date: 20201125
  Receipt Date: 20201125
  Transmission Date: 20210114
  Serious: No
  Sender: FDA-Public Use
  Company Number: US-ARMSTRONG PHARMACEUTICALS, INC.-2096327

PATIENT
  Sex: Male

DRUGS (2)
  1. LEVALBUTEROL. [Concomitant]
     Active Substance: LEVALBUTEROL
  2. PRIMATENE MIST [Suspect]
     Active Substance: EPINEPHRINE
     Indication: ASTHMA
     Route: 055

REACTIONS (3)
  - Palpitations [Unknown]
  - Heart rate increased [Unknown]
  - Dyspnoea [Unknown]
